FAERS Safety Report 17361952 (Version 1)
Quarter: 2020Q1

REPORT INFORMATION
  Report Type: Spontaneous
  Country: FR (occurrence: FR)
  Receive Date: 20200203
  Receipt Date: 20200203
  Transmission Date: 20200409
  Serious: Yes (Hospitalization)
  Sender: FDA-Public Use
  Company Number: FR-ADDMEDICA-202000003

PATIENT
  Age: 17 Year
  Sex: Female
  Weight: 62.4 kg

DRUGS (3)
  1. SIKLOS [Suspect]
     Active Substance: HYDROXYUREA
     Indication: SICKLE CELL DISEASE
     Route: 048
  2. SPECIAFOLDINE [Concomitant]
     Active Substance: FOLIC ACID
     Indication: PRODUCT USED FOR UNKNOWN INDICATION
     Route: 065
  3. TOLEXINE [Suspect]
     Active Substance: DOXYCYCLINE
     Indication: PRODUCT USED FOR UNKNOWN INDICATION
     Route: 048
     Dates: start: 20191217, end: 20200107

REACTIONS (5)
  - Dyspnoea [Recovering/Resolving]
  - Fatigue [Recovering/Resolving]
  - Neutropenia [Recovering/Resolving]
  - Haemolytic anaemia [Recovering/Resolving]
  - Thrombocytopenia [Not Recovered/Not Resolved]

NARRATIVE: CASE EVENT DATE: 20191217
